FAERS Safety Report 5967662-9 (Version None)
Quarter: 2008Q4

REPORT INFORMATION
  Report Type: 
  Country: None (occurrence: None)
  Receive Date: 20081126
  Receipt Date: 20081118
  Transmission Date: 20090506
  Serious: Yes (Other)
  Sender: FDA-Public Use
  Company Number: PHHY2008DE29016

PATIENT
  Sex: Female

DRUGS (1)
  1. RASILEZ [Suspect]

REACTIONS (2)
  - DRUG ERUPTION [None]
  - DRUG HYPERSENSITIVITY [None]
